FAERS Safety Report 8551399-6 (Version None)
Quarter: 2012Q3

REPORT INFORMATION
  Report Type: 
  Country: None (occurrence: None)
  Receive Date: 20120723
  Receipt Date: 20120723
  Transmission Date: 20120928
  Serious: Yes (Hospitalization)
  Sender: FDA-Public Use
  Company Number: None

PATIENT
  Sex: Female

DRUGS (4)
  1. -THYROID MEDICATION [Concomitant]
  2. TAMOXIFEN CITRATE [Suspect]
     Indication: BREAST CANCER
     Dosage: 20 MG ONCE A DAY PO
     Route: 048
     Dates: start: 20110924, end: 20120613
  3. -CHOLESTEROL MEDICATION [Concomitant]
  4. -ULCHER MEDICATION [Concomitant]

REACTIONS (1)
  - PULMONARY THROMBOSIS [None]
